FAERS Safety Report 21212673 (Version 1)
Quarter: 2022Q3

REPORT INFORMATION
  Report Type: Spontaneous
  Country: US (occurrence: None)
  Receive Date: 20220814
  Receipt Date: 20220814
  Transmission Date: 20221026
  Serious: Yes (Life-Threatening, Hospitalization, Disabling, Other)
  Sender: FDA-Public Use
  Company Number: None

PATIENT
  Age: 55 Year
  Sex: Female

DRUGS (1)
  1. LINZESS [Suspect]
     Active Substance: LINACLOTIDE
     Indication: Constipation
     Route: 048

REACTIONS (9)
  - Vomiting [None]
  - Diverticulitis [None]
  - Kidney infection [None]
  - Abdominal pain [None]
  - Feeding disorder [None]
  - Palpitations [None]
  - Myalgia [None]
  - Diarrhoea [None]
  - Interstitial lung disease [None]

NARRATIVE: CASE EVENT DATE: 20220715
